FAERS Safety Report 6767540-1 (Version None)
Quarter: 2010Q2

REPORT INFORMATION
  Report Type: 
  Country: None (occurrence: None)
  Receive Date: 20100614
  Receipt Date: 20100603
  Transmission Date: 20101027
  Serious: Yes (Other)
  Sender: FDA-Public Use
  Company Number: PHHY2010TW00552

PATIENT
  Age: 61 Year
  Sex: Male

DRUGS (1)
  1. ACLASTA [Suspect]
     Dosage: 5MG/ 100 ML
     Route: 042
     Dates: start: 20100104

REACTIONS (4)
  - ANURIA [None]
  - CHILLS [None]
  - INFLAMMATION [None]
  - PYREXIA [None]
